FAERS Safety Report 9266556 (Version 2)
Quarter: 2013Q3

REPORT INFORMATION
  Report Type: Report from Study
  Country: GB (occurrence: GB)
  Receive Date: 20130502
  Receipt Date: 20130718
  Transmission Date: 20140515
  Serious: Yes (Death)
  Sender: FDA-Public Use
  Company Number: GB-ROCHE-1220432

PATIENT
  Sex: Female

DRUGS (2)
  1. TOCILIZUMAB [Suspect]
     Indication: RHEUMATOID ARTHRITIS
     Dosage: LAST DOSE ON 24/JAN/2013
     Route: 065
     Dates: start: 20110314
  2. METHOTREXATE [Concomitant]

REACTIONS (2)
  - Pneumonia [Fatal]
  - Emphysema [Fatal]
